FAERS Safety Report 5723432-8 (Version None)
Quarter: 2008Q2

REPORT INFORMATION
  Report Type: 
  Country: None (occurrence: None)
  Receive Date: 20080425
  Receipt Date: 20070301
  Transmission Date: 20081010
  Serious: Yes (Other)
  Sender: FDA-Public Use
  Company Number: PHEH2007US02606

PATIENT
  Sex: Female

DRUGS (9)
  1. MYFORTIC [Suspect]
     Indication: RENAL TRANSPLANT
     Dosage: 540 MG, BID, ORAL
     Route: 048
     Dates: start: 20060524, end: 20060601
  2. MYFORTIC [Suspect]
     Indication: RENAL TRANSPLANT
     Dosage: 540 MG, BID, ORAL
     Route: 048
     Dates: start: 20060614, end: 20060601
  3. MYFORTIC [Suspect]
     Indication: RENAL TRANSPLANT
     Dosage: 540 MG, BID, ORAL
     Route: 048
     Dates: start: 20060621, end: 20060629
  4. LEVOXYL [Concomitant]
  5. ASPIRIN [Concomitant]
  6. POTASSIUM (POTASSIUM) [Concomitant]
  7. ZOCOR [Concomitant]
  8. VALTREX [Concomitant]
  9. BACTRIM [Concomitant]

REACTIONS (2)
  - DEHYDRATION [None]
  - DIARRHOEA [None]
